FAERS Safety Report 5279052-5 (Version None)
Quarter: 2007Q1

REPORT INFORMATION
  Report Type: 
  Country: None (occurrence: None)
  Receive Date: 20070328
  Receipt Date: 20060911
  Transmission Date: 20070707
  Serious: No
  Sender: FDA-Public Use
  Company Number: US-AMGEN-US189971

PATIENT
  Sex: Female
  Weight: 74.5 kg

DRUGS (7)
  1. NEULASTA [Suspect]
     Indication: CHEMOTHERAPY
     Route: 058
     Dates: start: 20060725, end: 20060809
  2. ADRIAMYCIN PFS [Concomitant]
     Route: 065
     Dates: start: 20060613, end: 20060807
  3. CYTOXAN [Concomitant]
     Route: 065
     Dates: start: 20060613, end: 20060807
  4. LUPRON [Concomitant]
     Dates: start: 20060601
  5. DEPAKOTE [Concomitant]
  6. CALCIUM [Concomitant]
  7. VITAMIN CAP [Concomitant]

REACTIONS (5)
  - ANAPHYLACTOID REACTION [None]
  - DIZZINESS [None]
  - DYSPNOEA [None]
  - LIP SWELLING [None]
  - SYNCOPE [None]
